FAERS Safety Report 10998032 (Version 1)
Quarter: 2015Q2

REPORT INFORMATION
  Report Type: Spontaneous
  Country: US (occurrence: None)
  Receive Date: 20150407
  Receipt Date: 20150407
  Transmission Date: 20150821
  Serious: No
  Sender: FDA-Public Use
  Company Number: None

PATIENT
  Age: 85 Year
  Sex: Male
  Weight: 62 kg

DRUGS (15)
  1. SODIUM CHLORIDE. [Concomitant]
     Active Substance: SODIUM CHLORIDE
  2. CEFTRIAXONE (ROCEPHIN) IVPB [Concomitant]
  3. MIDAZOLAM [Suspect]
     Active Substance: MIDAZOLAM\MIDAZOLAM HYDROCHLORIDE
     Indication: PREOPERATIVE CARE
     Route: 042
  4. FUROSEMIDE. [Concomitant]
     Active Substance: FUROSEMIDE
  5. LORAZEPAM. [Concomitant]
     Active Substance: LORAZEPAM
  6. LATANOPROST. [Concomitant]
     Active Substance: LATANOPROST
  7. FENTANYL. [Suspect]
     Active Substance: FENTANYL
     Indication: PREOPERATIVE CARE
     Route: 042
  8. LIDOCAINE. [Concomitant]
     Active Substance: LIDOCAINE
  9. AZITHROMYCIN [Concomitant]
     Active Substance: AZITHROMYCIN ANHYDROUS
  10. NALOXONE [Concomitant]
     Active Substance: NALOXONE
  11. TAMSULOSIN [Concomitant]
     Active Substance: TAMSULOSIN
  12. ALBUTEROL-IPRATROPIUM [Concomitant]
  13. GUAIFENESIN-DM NR [Concomitant]
     Active Substance: DEXTROMETHORPHAN HYDROBROMIDE\GUAIFENESIN
  14. METHYLPREDNISOLONE. [Concomitant]
     Active Substance: METHYLPREDNISOLONE
  15. PANTOPRAZOLE (PROTONIX) [Concomitant]

REACTIONS (5)
  - Oxygen saturation decreased [None]
  - Somnolence [None]
  - Agitation [None]
  - Atrial fibrillation [None]
  - Miosis [None]

NARRATIVE: CASE EVENT DATE: 20150115
